FAERS Safety Report 13344363 (Version 3)
Quarter: 2017Q2

REPORT INFORMATION
  Report Type: Spontaneous
  Country: JP (occurrence: JP)
  Receive Date: 20170317
  Receipt Date: 20170501
  Transmission Date: 20170830
  Serious: Yes (Death, Hospitalization, Other)
  Sender: FDA-Public Use
  Company Number: JP-009507513-1703JPN001122J

PATIENT
  Age: 77 Year
  Sex: Female
  Weight: 43 kg

DRUGS (7)
  1. CANCIDAS [Suspect]
     Active Substance: CASPOFUNGIN ACETATE
     Indication: FUNGAEMIA
     Dosage: 70 MG, QD
     Route: 041
     Dates: start: 20141216, end: 20141216
  2. CANCIDAS [Suspect]
     Active Substance: CASPOFUNGIN ACETATE
     Dosage: 35 MG, QD
     Route: 041
     Dates: start: 20141217, end: 20141222
  3. HEPARIN SODIUM. [Suspect]
     Active Substance: HEPARIN SODIUM
     Indication: DIALYSIS
     Dosage: UNK
     Route: 051
     Dates: start: 20141216, end: 20141222
  4. DALACIN [Concomitant]
     Active Substance: CLINDAMYCIN
     Dosage: 600 MG, QID
     Route: 041
  5. HEPARIN SODIUM. [Suspect]
     Active Substance: HEPARIN SODIUM
     Indication: ANTICOAGULANT THERAPY
     Dosage: 200 IU, UNK
     Route: 051
     Dates: start: 20141214, end: 20141223
  6. FOSFLUCONAZOLE [Concomitant]
     Active Substance: FOSFLUCONAZOLE
     Indication: FUNGAEMIA
     Dosage: UNK
     Route: 051
     Dates: start: 20141222
  7. MEROPEN [Concomitant]
     Active Substance: MEROPENEM
     Dosage: 1 MG, TID
     Route: 041

REACTIONS (2)
  - Oesophageal perforation [Fatal]
  - Platelet count decreased [Recovered/Resolved]

NARRATIVE: CASE EVENT DATE: 20141217
